FAERS Safety Report 22859310 (Version 2)
Quarter: 2023Q4

REPORT INFORMATION
  Report Type: Other
  Country: US (occurrence: None)
  Receive Date: 20230824
  Receipt Date: 20231218
  Transmission Date: 20240109
  Serious: Yes (Hospitalization)
  Sender: FDA-Public Use
  Company Number: US-ROCHE-3406700

PATIENT
  Age: 57 Year
  Sex: Female
  Weight: 59.02 kg

DRUGS (7)
  1. OCREVUS [Suspect]
     Active Substance: OCRELIZUMAB
     Indication: Multiple sclerosis
     Dosage: DATE OF TREATMENT: DEC/2021
     Route: 042
     Dates: start: 20190611
  2. BACLOFEN [Concomitant]
     Active Substance: BACLOFEN
  3. CARBAMAZEPINE [Concomitant]
     Active Substance: CARBAMAZEPINE
  4. OXYBUTYNIN [Concomitant]
     Active Substance: OXYBUTYNIN
  5. CALCIUM [Concomitant]
     Active Substance: CALCIUM
  6. RECLAST [Concomitant]
     Active Substance: ZOLEDRONIC ACID
  7. PAXLOVID [Concomitant]
     Active Substance: NIRMATRELVIR\RITONAVIR

REACTIONS (6)
  - COVID-19 [Recovered/Resolved]
  - Back pain [Not Recovered/Not Resolved]
  - Infection [Recovered/Resolved]
  - Micturition urgency [Unknown]
  - Spinal stenosis [Not Recovered/Not Resolved]
  - Intervertebral disc protrusion [Unknown]

NARRATIVE: CASE EVENT DATE: 20230101
